FAERS Safety Report 22029564 (Version 1)
Quarter: 2023Q1

REPORT INFORMATION
  Report Type: Spontaneous
  Country: US (occurrence: US)
  Receive Date: 20230223
  Receipt Date: 20230223
  Transmission Date: 20230418
  Serious: No
  Sender: FDA-Public Use
  Company Number: US-PFIZER INC-PV202200041844

PATIENT
  Age: 70 Year
  Sex: Female

DRUGS (1)
  1. VFEND [Suspect]
     Active Substance: VORICONAZOLE
     Dosage: 300 MG, 2X/DAY
     Route: 048

REACTIONS (4)
  - Alopecia [Unknown]
  - Sticky skin [Unknown]
  - Skin exfoliation [Unknown]
  - Rash [Unknown]
